FAERS Safety Report 11984516 (Version 2)
Quarter: 2017Q2

REPORT INFORMATION
  Report Type: Spontaneous
  Country: US (occurrence: US)
  Receive Date: 20160201
  Receipt Date: 20170410
  Transmission Date: 20170829
  Serious: No
  Sender: FDA-Public Use
  Company Number: US-CELGENEUS-USA-2016015823

PATIENT
  Age: 77 Year
  Sex: Male

DRUGS (3)
  1. POMALYST [Suspect]
     Active Substance: POMALIDOMIDE
     Indication: PLASMA CELL MYELOMA
     Dosage: 2 MILLIGRAM
     Route: 048
     Dates: start: 20140124
  2. POMALYST [Suspect]
     Active Substance: POMALIDOMIDE
     Dosage: 2 MILLIGRAM
     Route: 048
     Dates: start: 201510, end: 20160103
  3. POMALYST [Suspect]
     Active Substance: POMALIDOMIDE
     Dosage: 4 MILLIGRAM
     Route: 048
     Dates: start: 201509

REACTIONS (3)
  - Muscle spasms [Unknown]
  - Dizziness [Unknown]
  - Balance disorder [Unknown]

NARRATIVE: CASE EVENT DATE: 20160103
